FAERS Safety Report 19042222 (Version 14)
Quarter: 2023Q2

REPORT INFORMATION
  Report Type: Spontaneous
  Country: CA (occurrence: CA)
  Receive Date: 20210323
  Receipt Date: 20230617
  Transmission Date: 20230721
  Serious: Yes (Hospitalization, Other)
  Sender: FDA-Public Use
  Company Number: CA-AUROBINDO-AUR-APL-2021-011206

PATIENT
  Age: 54 Year
  Sex: Female

DRUGS (100)
  1. MONTELUKAST [Suspect]
     Active Substance: MONTELUKAST SODIUM
     Indication: Product used for unknown indication
     Dosage: UNK
     Route: 065
  2. MONTELUKAST [Suspect]
     Active Substance: MONTELUKAST SODIUM
     Dosage: UNK
     Route: 065
  3. PERINDOPRIL [Suspect]
     Active Substance: PERINDOPRIL
     Indication: Product used for unknown indication
     Dosage: UNK
     Route: 065
  4. TRAMADOL HYDROCHLORIDE [Suspect]
     Active Substance: TRAMADOL HYDROCHLORIDE
     Indication: Product used for unknown indication
     Dosage: UNK
     Route: 065
  5. TRAMADOL HYDROCHLORIDE [Suspect]
     Active Substance: TRAMADOL HYDROCHLORIDE
     Dosage: 50 MILLIGRAM
     Route: 065
  6. TRAMADOL HYDROCHLORIDE [Suspect]
     Active Substance: TRAMADOL HYDROCHLORIDE
     Dosage: 1 DOSAGE FORM
     Route: 065
  7. ACYCLOVIR [Suspect]
     Active Substance: ACYCLOVIR
     Indication: Product used for unknown indication
     Dosage: UNK
     Route: 016
  8. ELIQUIS [Suspect]
     Active Substance: APIXABAN
     Indication: Product used for unknown indication
     Dosage: 3 DOSAGE FORM, ONCE A DAY
     Route: 065
  9. TRAMADOL [Suspect]
     Active Substance: TRAMADOL
     Indication: Product used for unknown indication
     Dosage: UNK
     Route: 065
  10. BUDESONIDE [Suspect]
     Active Substance: BUDESONIDE
     Indication: Product used for unknown indication
     Dosage: 1 DOSAGE FORM, 3 TIMES A DAY
     Route: 055
  11. BUDESONIDE [Suspect]
     Active Substance: BUDESONIDE
     Dosage: 3 DOSAGE FORM, ONCE A DAY
     Route: 045
  12. BUDESONIDE [Suspect]
     Active Substance: BUDESONIDE
     Dosage: 3 DOSAGE FORM, ONCE A DAY
     Route: 045
  13. BUDESONIDE [Suspect]
     Active Substance: BUDESONIDE
     Dosage: UNK UNK, 3 TIMES A DAY
     Route: 045
  14. BUDESONIDE [Suspect]
     Active Substance: BUDESONIDE
     Dosage: UNK
     Route: 045
  15. BUDESONIDE\FORMOTEROL FUMARATE [Suspect]
     Active Substance: BUDESONIDE\FORMOTEROL FUMARATE
     Indication: Product used for unknown indication
     Dosage: 3 DOSAGE FORM, ONCE A DAY
     Route: 065
  16. BUDESONIDE\FORMOTEROL FUMARATE [Suspect]
     Active Substance: BUDESONIDE\FORMOTEROL FUMARATE
     Dosage: 1 DOSAGE FORM, ONCE A DAY
     Route: 065
  17. BUDESONIDE\FORMOTEROL FUMARATE [Suspect]
     Active Substance: BUDESONIDE\FORMOTEROL FUMARATE
     Dosage: 3 DOSAGE FORM, ONCE A DAY
     Route: 045
  18. BUDESONIDE\FORMOTEROL FUMARATE [Suspect]
     Active Substance: BUDESONIDE\FORMOTEROL FUMARATE
     Dosage: 3 DOSAGE FORM, ONCE A DAY
     Route: 065
  19. BUDESONIDE\FORMOTEROL FUMARATE [Suspect]
     Active Substance: BUDESONIDE\FORMOTEROL FUMARATE
     Dosage: 3 DOSAGE FORM
     Route: 065
  20. BUDESONIDE\FORMOTEROL FUMARATE [Suspect]
     Active Substance: BUDESONIDE\FORMOTEROL FUMARATE
     Dosage: 3 DOSAGE FORM
     Route: 065
  21. BUDESONIDE\FORMOTEROL FUMARATE [Suspect]
     Active Substance: BUDESONIDE\FORMOTEROL FUMARATE
     Dosage: 3 DOSAGE FORM
     Route: 065
  22. BUDESONIDE\FORMOTEROL FUMARATE [Suspect]
     Active Substance: BUDESONIDE\FORMOTEROL FUMARATE
     Dosage: 1 DOSAGE FORM, 3 TIMES A DAY
     Route: 065
  23. BUDESONIDE\FORMOTEROL FUMARATE [Suspect]
     Active Substance: BUDESONIDE\FORMOTEROL FUMARATE
     Dosage: 1 DOSAGE FORM, 3 TIMES A DAY
     Route: 045
  24. BUDESONIDE\FORMOTEROL FUMARATE [Suspect]
     Active Substance: BUDESONIDE\FORMOTEROL FUMARATE
     Dosage: UNK
     Route: 065
  25. BUPROPION [Suspect]
     Active Substance: BUPROPION
     Indication: Product used for unknown indication
     Dosage: UNK
     Route: 065
  26. CLONAZEPAM [Suspect]
     Active Substance: CLONAZEPAM
     Indication: Product used for unknown indication
     Dosage: UNK
     Route: 048
  27. ESOMEPRAZOLE [Suspect]
     Active Substance: ESOMEPRAZOLE
     Indication: Product used for unknown indication
     Dosage: UNK
     Route: 065
  28. ERGOCALCIFEROL [Suspect]
     Active Substance: ERGOCALCIFEROL
     Indication: Product used for unknown indication
     Route: 065
  29. FORMOTEROL FUMARATE [Suspect]
     Active Substance: FORMOTEROL FUMARATE
     Indication: Product used for unknown indication
     Dosage: 3 DOSAGE FORM, ONCE A DAY
     Route: 065
  30. FORMOTEROL FUMARATE [Suspect]
     Active Substance: FORMOTEROL FUMARATE
     Dosage: UNK
     Route: 065
  31. FORMOTEROL FUMARATE [Suspect]
     Active Substance: FORMOTEROL FUMARATE
     Dosage: 3 DOSAGE FORM
     Route: 065
  32. HYALURONATE SODIUM [Suspect]
     Active Substance: HYALURONATE SODIUM
     Indication: Product used for unknown indication
     Dosage: UNK
     Route: 065
  33. CHOLECALCIFEROL [Suspect]
     Active Substance: CHOLECALCIFEROL
     Indication: Product used for unknown indication
     Dosage: UNK
     Route: 065
  34. LEVOTHYROXINE [Suspect]
     Active Substance: LEVOTHYROXINE
     Indication: Product used for unknown indication
     Dosage: UNK
     Route: 048
  35. LEVOTHYROXINE [Suspect]
     Active Substance: LEVOTHYROXINE
     Dosage: UNK
     Route: 065
  36. LEVOTHYROXINE [Suspect]
     Active Substance: LEVOTHYROXINE
     Dosage: UNK
     Route: 048
  37. LIOTHYRONINE SODIUM [Suspect]
     Active Substance: LIOTHYRONINE SODIUM
     Indication: Product used for unknown indication
     Dosage: UNK
     Route: 048
  38. LIOTHYRONINE SODIUM [Suspect]
     Active Substance: LIOTHYRONINE SODIUM
     Dosage: UNK
     Route: 065
  39. METOPROLOL [Suspect]
     Active Substance: METOPROLOL
     Indication: Product used for unknown indication
     Dosage: UNK
     Route: 065
  40. MOMETASONE [Suspect]
     Active Substance: MOMETASONE
     Indication: Product used for unknown indication
     Dosage: 50 MICROGRAM, TWO TIMES A DAY
     Route: 045
  41. MOMETASONE [Suspect]
     Active Substance: MOMETASONE
     Dosage: 50 MILLIGRAM, TWO TIMES A DAY
     Route: 065
  42. MOMETASONE [Suspect]
     Active Substance: MOMETASONE
     Dosage: 100 MILLIGRAM, ONCE A DAY
     Route: 065
  43. MOMETASONE [Suspect]
     Active Substance: MOMETASONE
     Dosage: 50 MILLIGRAM, ONCE A DAY
     Route: 065
  44. MOMETASONE [Suspect]
     Active Substance: MOMETASONE
     Dosage: 50 MILLIGRAM, ONCE A DAY
     Route: 065
  45. MOMETASONE [Suspect]
     Active Substance: MOMETASONE
     Dosage: 50 MILLIGRAM
     Route: 065
  46. MOMETASONE [Suspect]
     Active Substance: MOMETASONE
     Dosage: 100 MILLIGRAM
     Route: 065
  47. MOMETASONE [Suspect]
     Active Substance: MOMETASONE
     Dosage: 500 MILLIGRAM
     Route: 065
  48. MOMETASONE [Suspect]
     Active Substance: MOMETASONE
     Dosage: 1 DOSAGE FORM
     Route: 065
  49. MOMETASONE [Suspect]
     Active Substance: MOMETASONE
     Dosage: UNK
     Route: 065
  50. MOMETASONE [Suspect]
     Active Substance: MOMETASONE
     Dosage: 50 MILLIGRAM, TWO TIMES A DAY
     Route: 045
  51. NASONEX [Suspect]
     Active Substance: MOMETASONE FUROATE
     Indication: Product used for unknown indication
     Dosage: UNK
     Route: 065
  52. PREDNISONE [Suspect]
     Active Substance: PREDNISONE
     Indication: Product used for unknown indication
     Dosage: UNK
     Route: 065
  53. DIETARY SUPPLEMENT [Suspect]
     Active Substance: DIETARY SUPPLEMENT
     Indication: Product used for unknown indication
     Dosage: 1000 MILLIGRAM
     Route: 065
  54. DIETARY SUPPLEMENT [Suspect]
     Active Substance: DIETARY SUPPLEMENT
     Indication: Product used for unknown indication
     Dosage: 1000 MILLIGRAM
     Route: 065
  55. ALBUTEROL SULFATE [Suspect]
     Active Substance: ALBUTEROL SULFATE
     Indication: Product used for unknown indication
     Dosage: UNK
     Route: 065
  56. ALBUTEROL SULFATE [Suspect]
     Active Substance: ALBUTEROL SULFATE
     Indication: Product used for unknown indication
     Dosage: UNK
     Route: 065
  57. SODIUM BICARBONATE [Suspect]
     Active Substance: SODIUM BICARBONATE
     Indication: Product used for unknown indication
     Dosage: UNK
     Route: 065
  58. SODIUM BICARBONATE\SODIUM CHLORIDE [Suspect]
     Active Substance: SODIUM BICARBONATE\SODIUM CHLORIDE
     Indication: Product used for unknown indication
     Dosage: 50 MILLIGRAM, TWO TIMES A DAY
     Route: 065
  59. SODIUM BICARBONATE\SODIUM CHLORIDE [Suspect]
     Active Substance: SODIUM BICARBONATE\SODIUM CHLORIDE
     Dosage: 50 MICROGRAM, TWO TIMES A DAY
     Route: 065
  60. SODIUM BICARBONATE\SODIUM CHLORIDE [Suspect]
     Active Substance: SODIUM BICARBONATE\SODIUM CHLORIDE
     Dosage: 50 MICROGRAM
     Route: 065
  61. SODIUM CHLORIDE [Suspect]
     Active Substance: SODIUM CHLORIDE
     Indication: Product used for unknown indication
     Dosage: UNK
     Route: 065
  62. SODIUM CHLORIDE [Suspect]
     Active Substance: SODIUM CHLORIDE
     Dosage: 50 MICROGRAM, TWO TIMES A DAY
     Route: 065
  63. SODIUM CHLORIDE [Suspect]
     Active Substance: SODIUM CHLORIDE
     Indication: Product used for unknown indication
     Dosage: UNK
     Route: 065
  64. SPIRONOLACTONE [Suspect]
     Active Substance: SPIRONOLACTONE
     Indication: Product used for unknown indication
     Dosage: UNK
     Route: 048
  65. SPIRONOLACTONE [Suspect]
     Active Substance: SPIRONOLACTONE
     Dosage: UNK
     Route: 065
  66. SYMBICORT [Suspect]
     Active Substance: BUDESONIDE\FORMOTEROL FUMARATE DIHYDRATE
     Indication: Product used for unknown indication
     Dosage: UNK, 3 TIMES A DAY
     Route: 065
  67. SYMBICORT [Suspect]
     Active Substance: BUDESONIDE\FORMOTEROL FUMARATE DIHYDRATE
     Dosage: 3 DOSAGE FORM, ONCE A DAY
     Route: 065
  68. TRAZODONE [Suspect]
     Active Substance: TRAZODONE HYDROCHLORIDE
     Indication: Product used for unknown indication
     Dosage: UNK
     Route: 065
  69. ULTRAM [Suspect]
     Active Substance: TRAMADOL HYDROCHLORIDE
     Indication: Product used for unknown indication
     Dosage: 50 MILLIGRAM
     Route: 065
  70. ULTRAM [Suspect]
     Active Substance: TRAMADOL HYDROCHLORIDE
     Dosage: 1 DOSAGE FORM, 3 TIMES A DAY
     Route: 065
  71. VITAMIN B12 [Suspect]
     Active Substance: CYANOCOBALAMIN
     Indication: Product used for unknown indication
     Dosage: UNK
     Route: 065
  72. VITAMIN B12 [Suspect]
     Active Substance: CYANOCOBALAMIN
     Dosage: UNK
     Route: 065
  73. VITAMIN C [Suspect]
     Active Substance: ASCORBIC ACID
     Indication: Product used for unknown indication
     Dosage: 1000 MILLIGRAM, ONCE A DAY
     Route: 065
  74. VITAMIN C [Suspect]
     Active Substance: ASCORBIC ACID
     Dosage: 100 MILLIGRAM
     Route: 065
  75. VITAMIN D [Suspect]
     Active Substance: VITAMIN D NOS
     Indication: Product used for unknown indication
     Dosage: UNK
     Route: 065
  76. VITAMIN D3 [Suspect]
     Active Substance: CHOLECALCIFEROL
     Indication: Product used for unknown indication
     Dosage: UNK
     Route: 065
  77. APIXABAN [Suspect]
     Active Substance: APIXABAN
     Indication: Product used for unknown indication
     Dosage: UNK
     Route: 016
  78. APIXABAN [Suspect]
     Active Substance: APIXABAN
     Dosage: 3 DOSAGE FORM, 1 EVERY 24 HOURS
     Route: 065
  79. ACYCLOVIR [Suspect]
     Active Substance: ACYCLOVIR
     Indication: Product used for unknown indication
     Dosage: UNK
     Route: 065
  80. BUPROPION [Suspect]
     Active Substance: BUPROPION
     Indication: Product used for unknown indication
     Dosage: UNK
     Route: 065
  81. COBAMAMIDE [Suspect]
     Active Substance: COBAMAMIDE
     Indication: Product used for unknown indication
     Dosage: UNK
     Route: 065
  82. MONTELUKAST SODIUM [Suspect]
     Active Substance: MONTELUKAST SODIUM
     Indication: Product used for unknown indication
     Dosage: UNK
     Route: 016
  83. PERINDOPRIL [Suspect]
     Active Substance: PERINDOPRIL
     Indication: Product used for unknown indication
     Dosage: UNK
     Route: 016
  84. PERINDOPRIL ARGININE [Suspect]
     Active Substance: PERINDOPRIL ARGININE
     Indication: Product used for unknown indication
     Dosage: UNK
     Route: 065
  85. APIXABAN [Suspect]
     Active Substance: APIXABAN
     Indication: Product used for unknown indication
     Dosage: 1 DOSAGE FORM, ONCE A DAY
     Route: 065
  86. DIETARY SUPPLEMENT\HERBALS [Suspect]
     Active Substance: DIETARY SUPPLEMENT\HERBALS
     Indication: Product used for unknown indication
     Dosage: 100 MILLIGRAM
     Route: 048
  87. DIETARY SUPPLEMENT\HERBALS [Suspect]
     Active Substance: DIETARY SUPPLEMENT\HERBALS
     Indication: Product used for unknown indication
     Dosage: 1000 MILLIGRAM
     Route: 065
  88. DIETARY SUPPLEMENT [Suspect]
     Active Substance: DIETARY SUPPLEMENT
     Indication: Product used for unknown indication
     Dosage: 1000 MILLIGRAM
     Route: 048
  89. METOPROLOL FUMARATE [Suspect]
     Active Substance: METOPROLOL FUMARATE
     Indication: Product used for unknown indication
     Dosage: UNK
     Route: 065
  90. ACYCLOVIR [Concomitant]
     Active Substance: ACYCLOVIR
     Indication: Product used for unknown indication
     Dosage: UNK
     Route: 016
  91. ACYCLOVIR [Concomitant]
     Active Substance: ACYCLOVIR
     Dosage: UNK
     Route: 065
  92. BUDESONIDE\FORMOTEROL FUMARATE [Concomitant]
     Active Substance: BUDESONIDE\FORMOTEROL FUMARATE
     Indication: Product used for unknown indication
     Dosage: UNK
     Route: 065
  93. BUPROPION HYDROCHLORIDE [Concomitant]
     Active Substance: BUPROPION HYDROCHLORIDE
     Indication: Product used for unknown indication
     Dosage: UNK
     Route: 065
  94. VENTOLIN [Concomitant]
     Active Substance: ALBUTEROL SULFATE
     Indication: Product used for unknown indication
     Dosage: UNK
     Route: 065
  95. FORMOTEROL FUMARATE [Concomitant]
     Active Substance: FORMOTEROL FUMARATE
     Indication: Product used for unknown indication
     Dosage: UNK, 3 TIMES A DAY
     Route: 065
  96. FORMOTEROL FUMARATE [Concomitant]
     Active Substance: FORMOTEROL FUMARATE
     Dosage: UNK
     Route: 065
  97. METOPROLOL [Concomitant]
     Active Substance: METOPROLOL
     Indication: Product used for unknown indication
  98. TRAMADOL HYDROCHLORIDE [Concomitant]
     Active Substance: TRAMADOL HYDROCHLORIDE
     Indication: Product used for unknown indication
     Dosage: UNK
     Route: 065
  99. VITAMIN B12 [Concomitant]
     Active Substance: CYANOCOBALAMIN
     Indication: Product used for unknown indication
  100. SEA WATER [Concomitant]
     Active Substance: SEA WATER
     Indication: Product used for unknown indication
     Dosage: UNK
     Route: 065

REACTIONS (30)
  - Blood test abnormal [Recovered/Resolved]
  - Burning sensation [Recovered/Resolved]
  - Cardiac disorder [Recovered/Resolved]
  - Carpal tunnel syndrome [Recovered/Resolved]
  - Dyspnoea [Recovered/Resolved]
  - Ejection fraction abnormal [Recovered/Resolved]
  - Ejection fraction [Recovered/Resolved]
  - Asthma [Recovered/Resolved]
  - Fibromyalgia [Recovered/Resolved]
  - Gastrooesophageal reflux disease [Recovered/Resolved]
  - Hospitalisation [Recovered/Resolved]
  - Headache [Recovered/Resolved]
  - Hypothyroidism [Recovered/Resolved]
  - Hypertension [Recovered/Resolved]
  - Loss of personal independence in daily activities [Recovered/Resolved]
  - Nephrectomy [Recovered/Resolved]
  - Polycystic ovaries [Recovered/Resolved]
  - Rhinitis allergic [Recovered/Resolved]
  - Renal disorder [Recovered/Resolved]
  - Sleep apnoea syndrome [Recovered/Resolved]
  - Sleep disorder due to a general medical condition [Recovered/Resolved]
  - Sensitisation [Recovered/Resolved]
  - Wheezing [Unknown]
  - Adverse event [Recovered/Resolved]
  - Obstructive sleep apnoea syndrome [Recovered/Resolved]
  - Full blood count abnormal [Recovered/Resolved]
  - Therapeutic product effect incomplete [Recovered/Resolved]
  - Nephropathy [Recovered/Resolved]
  - Intentional product use issue [Recovered/Resolved]
  - Sleep disorder due to general medical condition, insomnia type [Recovered/Resolved]
